FAERS Safety Report 14814663 (Version 3)
Quarter: 2018Q3

REPORT INFORMATION
  Report Type: Spontaneous
  Country: US (occurrence: US)
  Receive Date: 20180426
  Receipt Date: 20180828
  Transmission Date: 20181010
  Serious: Yes (Death)
  Sender: FDA-Public Use
  Company Number: US-ASTRAZENECA-2018SE42905

PATIENT
  Age: 78 Year
  Sex: Female
  Weight: 72.1 kg

DRUGS (1)
  1. TUDORZA PRESSAIR [Suspect]
     Active Substance: ACLIDINIUM BROMIDE
     Indication: CHRONIC OBSTRUCTIVE PULMONARY DISEASE
     Route: 055
     Dates: start: 2018

REACTIONS (12)
  - Respiratory failure [Fatal]
  - Device malfunction [Unknown]
  - Productive cough [Unknown]
  - Eye disorder [Unknown]
  - Memory impairment [Unknown]
  - Arthralgia [Unknown]
  - Dyspnoea [Unknown]
  - Device failure [Unknown]
  - Chronic kidney disease [Unknown]
  - Drug dose omission [Unknown]
  - Intentional device misuse [Unknown]
  - Wrong technique in device usage process [Unknown]
